FAERS Safety Report 12526764 (Version 1)
Quarter: 2016Q3

REPORT INFORMATION
  Report Type: Spontaneous
  Country: DK (occurrence: DK)
  Receive Date: 20160705
  Receipt Date: 20160705
  Transmission Date: 20161109
  Serious: Yes (Hospitalization)
  Sender: FDA-Public Use
  Company Number: DK-ACTAVIS-2016-14424

PATIENT
  Age: 28 Year
  Sex: Female
  Weight: 72 kg

DRUGS (3)
  1. TRAMADOL RETARD ACTAVIS [Suspect]
     Active Substance: TRAMADOL
     Indication: PAIN
     Dosage: 200 MG, DAILY
     Route: 048
     Dates: start: 2006
  2. TRAMADOL RETARD [Suspect]
     Active Substance: TRAMADOL
     Indication: PRODUCT USED FOR UNKNOWN INDICATION
     Dosage: 200 MG, DAILY
     Route: 048
     Dates: start: 2006
  3. TRAMADOL RETARD ^HEXAL^ [Suspect]
     Active Substance: TRAMADOL
     Indication: PAIN
     Dosage: 200 MG, BID (STYRKE: 200 MG)
     Route: 048
     Dates: start: 2006

REACTIONS (4)
  - Epilepsy [Recovering/Resolving]
  - Mood swings [Not Recovered/Not Resolved]
  - Anger [Not Recovered/Not Resolved]
  - Pruritus [Not Recovered/Not Resolved]

NARRATIVE: CASE EVENT DATE: 20060410
